FAERS Safety Report 10165608 (Version 1)
Quarter: 2014Q2

REPORT INFORMATION
  Report Type: Spontaneous
  Country: US (occurrence: US)
  Receive Date: 20140510
  Receipt Date: 20140510
  Transmission Date: 20141212
  Serious: No
  Sender: FDA-Public Use
  Company Number: US-BRISTOL-MYERS SQUIBB COMPANY-20566717

PATIENT
  Age: 64 Year
  Sex: Male
  Weight: 93.42 kg

DRUGS (3)
  1. BYDUREON [Suspect]
     Indication: TYPE 2 DIABETES MELLITUS
     Dates: start: 20140224
  2. METFORMIN HCL [Suspect]
     Route: 048
  3. GLIPIZIDE [Suspect]
     Route: 048

REACTIONS (7)
  - Weight decreased [Unknown]
  - Decreased appetite [Not Recovered/Not Resolved]
  - Nausea [Recovered/Resolved]
  - Injection site pruritus [Recovering/Resolving]
  - Injection site rash [Recovering/Resolving]
  - Back pain [Not Recovered/Not Resolved]
  - Blood glucose decreased [Recovering/Resolving]
